FAERS Safety Report 5931729-1 (Version None)
Quarter: 2008Q4

REPORT INFORMATION
  Report Type: 
  Country: None (occurrence: None)
  Receive Date: 20081027
  Receipt Date: 20081015
  Transmission Date: 20090506
  Serious: Yes (Hospitalization)
  Sender: FDA-Public Use
  Company Number: FR-ROCHE-593241

PATIENT
  Age: 46 Year

DRUGS (9)
  1. MYCOPHENOLATE MOFETIL [Suspect]
     Dosage: PROGRESSIVELY INCREASED. MINIMUM TARGET OF 2G PER DAY
     Route: 065
  2. RITUXIMAB [Suspect]
     Indication: HEART TRANSPLANT REJECTION
     Dosage: INFUSION. AT A RATE OF 50MG/HOUR. AFTER 30 MINUTES.
     Route: 065
  3. PREDNISOLONE [Suspect]
     Route: 065
  4. PREDNISOLONE [Suspect]
     Dosage: INCREASED
     Route: 065
  5. CYCLOSPORINE [Suspect]
     Dosage: PROGRESSIVE INCREASE
     Route: 065
  6. HYDROXYZINE [Concomitant]
  7. ACETAMINOPHEN [Concomitant]
  8. METHYLPREDNISOLONE 16MG TAB [Concomitant]
  9. HYDROCORTISONE [Concomitant]

REACTIONS (7)
  - ATRIOVENTRICULAR BLOCK SECOND DEGREE [None]
  - CARDIAC FAILURE CONGESTIVE [None]
  - DIASTOLIC DYSFUNCTION [None]
  - DRUG INEFFECTIVE [None]
  - DYSPNOEA [None]
  - HEART TRANSPLANT REJECTION [None]
  - PULMONARY HYPERTENSION [None]
